FAERS Safety Report 5629986-4 (Version None)
Quarter: 2008Q1

REPORT INFORMATION
  Report Type: 
  Country: None (occurrence: None)
  Receive Date: 20080218
  Receipt Date: 20080206
  Transmission Date: 20080703
  Serious: Yes (Hospitalization)
  Sender: FDA-Public Use
  Company Number: JP-ROCHE-546347

PATIENT
  Age: 50 Year
  Sex: Female

DRUGS (5)
  1. CELLCEPT [Suspect]
     Route: 065
     Dates: end: 20070201
  2. CELLCEPT [Suspect]
     Dosage: RESTARTED.
     Route: 065
     Dates: start: 20070301
  3. CYCLOSPORINE [Concomitant]
     Dosage: RESTARTED.
     Dates: end: 20070201
  4. CYCLOSPORINE [Concomitant]
     Dosage: RESTARTED.
     Dates: start: 20070301
  5. METHYLPREDNISOLONE [Concomitant]

REACTIONS (3)
  - MENINGITIS BACTERIAL [None]
  - MULTI-ORGAN FAILURE [None]
  - UPPER RESPIRATORY TRACT INFLAMMATION [None]
